FAERS Safety Report 9157454 (Version 2)
Quarter: 2013Q2

REPORT INFORMATION
  Report Type: Spontaneous
  Country: US (occurrence: US)
  Receive Date: 20130312
  Receipt Date: 20130531
  Transmission Date: 20140414
  Serious: Yes (Other)
  Sender: FDA-Public Use
  Company Number: US-PFIZER INC-2013079353

PATIENT
  Age: 82 Year
  Sex: Female
  Weight: 54.42 kg

DRUGS (1)
  1. DEPO-MEDROL [Suspect]
     Dosage: 3 INJECTIONS, UNK

REACTIONS (3)
  - Renal impairment [Unknown]
  - Hepatic function abnormal [Unknown]
  - Drug ineffective [Unknown]
